FAERS Safety Report 24691123 (Version 1)
Quarter: 2024Q4

REPORT INFORMATION
  Report Type: Spontaneous
  Country: FR (occurrence: FR)
  Receive Date: 20241203
  Receipt Date: 20241203
  Transmission Date: 20250115
  Serious: Yes (Other)
  Sender: MYLAN
  Company Number: None

PATIENT
  Age: 62 Year
  Sex: Female

DRUGS (10)
  1. CEFAZOLIN [Suspect]
     Active Substance: CEFAZOLIN
     Indication: Infection prophylaxis
     Dosage: UNK
     Route: 042
     Dates: start: 20240911, end: 20240911
  2. NEFOPAM [Suspect]
     Active Substance: NEFOPAM
     Indication: Pain
     Route: 042
     Dates: start: 20240911, end: 20240911
  3. DEXAMETHASONE [Suspect]
     Active Substance: DEXAMETHASONE
     Indication: Prophylaxis
     Dosage: UNK
     Route: 042
     Dates: start: 20240911, end: 20240911
  4. DAFALGAN [Suspect]
     Active Substance: ACETAMINOPHEN
     Indication: Pain
     Dosage: 3 GRAM, QD
     Route: 048
     Dates: start: 20240911
  5. KETAMINE [Suspect]
     Active Substance: KETAMINE
     Indication: Induction of anaesthesia
     Dosage: UNK
     Route: 042
     Dates: start: 20240911, end: 20240911
  6. DIPRIVAN [Suspect]
     Active Substance: PROPOFOL
     Indication: Anaesthesia
     Dosage: 1.5 MILLIGRAM/KILOGRAM (INJECTABLE EMULSION IN PRE-FILLED SYRINGE)
     Route: 042
     Dates: start: 20240911, end: 20240911
  7. DROPERIDOL [Suspect]
     Active Substance: DROPERIDOL
     Indication: Prophylaxis of nausea and vomiting
     Dosage: 0.63 MILLIGRAM, TOTAL (0.625 MG/T)
     Route: 042
     Dates: start: 20240911, end: 20240911
  8. MAGNESIUM SULFATE ANHYDROUS [Concomitant]
     Active Substance: MAGNESIUM SULFATE ANHYDROUS
     Dosage: UNK
     Route: 065
  9. REMIFENTANIL HYDROCHLORIDE [Concomitant]
     Active Substance: REMIFENTANIL HYDROCHLORIDE
     Dosage: UNK
     Route: 065
  10. TRACRIUM [Concomitant]
     Active Substance: ATRACURIUM BESYLATE
     Dosage: SOLUTION FOR INJECTION IN AMPOULE
     Route: 065

REACTIONS (1)
  - Acute generalised exanthematous pustulosis [Recovered/Resolved]

NARRATIVE: CASE EVENT DATE: 20240917
